FAERS Safety Report 10641676 (Version 1)
Quarter: 2014Q4

REPORT INFORMATION
  Report Type: Spontaneous
  Country: US (occurrence: None)
  Receive Date: 20141208
  Receipt Date: 20141208
  Transmission Date: 20150529
  Serious: No
  Sender: FDA-Public Use
  Company Number: None

PATIENT
  Age: 72 Year
  Sex: Female

DRUGS (1)
  1. SIMPONI [Suspect]
     Active Substance: GOLIMUMAB
     Indication: RHEUMATOID ARTHRITIS
     Dosage: 50MG/4ML, EVERY 8 WEEKS, IV
     Route: 042
     Dates: start: 20140821

REACTIONS (2)
  - Drug ineffective [None]
  - Arthritis [None]

NARRATIVE: CASE EVENT DATE: 20141205
